FAERS Safety Report 18224363 (Version 1)
Quarter: 2020Q3

REPORT INFORMATION
  Report Type: Spontaneous
  Country: US (occurrence: US)
  Receive Date: 20200902
  Receipt Date: 20200902
  Transmission Date: 20201103
  Serious: Yes (Other)
  Sender: FDA-Public Use
  Company Number: US-PURDUE-USA-2020-0164287

PATIENT
  Sex: Male

DRUGS (4)
  1. OXYCONTIN [Suspect]
     Active Substance: OXYCODONE HYDROCHLORIDE
     Indication: PRODUCT USED FOR UNKNOWN INDICATION
     Route: 048
  2. OXYCODONE HCL CR TABLETS (SIMILAR TO NDA 22?272) [Suspect]
     Active Substance: OXYCODONE HYDROCHLORIDE
     Indication: PRODUCT USED FOR UNKNOWN INDICATION
     Route: 048
  3. OXYCODONE HCL TABLETS (91?490) [Suspect]
     Active Substance: OXYCODONE HYDROCHLORIDE
     Indication: PRODUCT USED FOR UNKNOWN INDICATION
     Route: 048
  4. OXYCODONE/ ACETAMINOPHEN TABLETS [Suspect]
     Active Substance: ACETAMINOPHEN\OXYCODONE HYDROCHLORIDE
     Indication: PRODUCT USED FOR UNKNOWN INDICATION
     Route: 048

REACTIONS (17)
  - Schizophrenia [Unknown]
  - Emotional distress [Unknown]
  - Dyskinesia [Unknown]
  - Hallucination [Unknown]
  - Weight increased [Unknown]
  - Self-medication [Unknown]
  - Gynaecomastia [Unknown]
  - Poor quality sleep [Unknown]
  - Dependence [Unknown]
  - Self-consciousness [Unknown]
  - Depression [Unknown]
  - Disturbance in attention [Unknown]
  - Eating disorder [Unknown]
  - Constipation [Unknown]
  - Dry mouth [Unknown]
  - Stress [Unknown]
  - Abdominal pain upper [Unknown]
